FAERS Safety Report 23793872 (Version 1)
Quarter: 2024Q2

REPORT INFORMATION
  Report Type: Spontaneous
  Country: US (occurrence: US)
  Receive Date: 20240429
  Receipt Date: 20240429
  Transmission Date: 20240715
  Serious: Yes (Hospitalization, Other)
  Sender: FDA-Public Use
  Company Number: US-MEDLEY-000004

PATIENT
  Age: 7 Year
  Sex: Male

DRUGS (1)
  1. OXCARBAZEPINE [Suspect]
     Active Substance: OXCARBAZEPINE
     Indication: Affective disorder
     Route: 065

REACTIONS (8)
  - Myalgia [Unknown]
  - Cough [Unknown]
  - Oropharyngeal pain [Unknown]
  - Nasal congestion [Unknown]
  - Abdominal pain [Unknown]
  - Drug reaction with eosinophilia and systemic symptoms [Recovered/Resolved]
  - Hepatosplenomegaly [Unknown]
  - Pyrexia [Unknown]
